FAERS Safety Report 7401513-0 (Version None)
Quarter: 2011Q2

REPORT INFORMATION
  Report Type: 
  Country: None (occurrence: None)
  Receive Date: 20110408
  Receipt Date: 20110325
  Transmission Date: 20111010
  Serious: Yes (Hospitalization)
  Sender: FDA-Public Use
  Company Number: FR-BIOGENIDEC-2011BI004213

PATIENT
  Age: 49 Year
  Sex: Female

DRUGS (4)
  1. TYSABRI [Suspect]
     Indication: MULTIPLE SCLEROSIS
     Route: 042
     Dates: start: 20080331, end: 20101129
  2. PROANTHOCYANIDINE [Concomitant]
     Indication: OEDEMA
  3. RIVOTRIL [Concomitant]
  4. CHONDROITIN [Concomitant]
     Indication: OSTEOARTHRITIS

REACTIONS (1)
  - INTERSTITIAL LUNG DISEASE [None]
